FAERS Safety Report 12856687 (Version 2)
Quarter: 2017Q1

REPORT INFORMATION
  Report Type: Spontaneous
  Country: US (occurrence: US)
  Receive Date: 20161018
  Receipt Date: 20170223
  Transmission Date: 20170428
  Serious: No
  Sender: FDA-Public Use
  Company Number: US-TEVA-695046ACC

PATIENT
  Age: 21 Year
  Sex: Female
  Weight: 49.94 kg

DRUGS (1)
  1. TAKE ACTION [Suspect]
     Active Substance: LEVONORGESTREL
     Indication: POST COITAL CONTRACEPTION
     Dates: start: 20160813, end: 20160813

REACTIONS (8)
  - Headache [Not Recovered/Not Resolved]
  - Dysmenorrhoea [Recovered/Resolved]
  - Increased appetite [Unknown]
  - Weight decreased [Unknown]
  - Vaginal discharge [Recovered/Resolved]
  - Pain [Unknown]
  - Abdominal distension [Unknown]
  - Menorrhagia [Recovered/Resolved]

NARRATIVE: CASE EVENT DATE: 20160818
